FAERS Safety Report 25473210 (Version 1)
Quarter: 2025Q2

REPORT INFORMATION
  Report Type: Report from Study
  Country: US (occurrence: US)
  Receive Date: 20250624
  Receipt Date: 20250624
  Transmission Date: 20250716
  Serious: Yes (Hospitalization, Other)
  Sender: GALDERMA
  Company Number: US-GALDERMA-US2025010403

PATIENT

DRUGS (1)
  1. NEMOLIZUMAB [Suspect]
     Active Substance: NEMOLIZUMAB
     Indication: Neurodermatitis
     Route: 058
     Dates: start: 202412, end: 202412

REACTIONS (4)
  - Hypersensitivity [Unknown]
  - Urinary tract infection [Unknown]
  - Sepsis [Unknown]
  - Psoriasis [Recovering/Resolving]
